FAERS Safety Report 10630456 (Version 1)
Quarter: 2014Q4

REPORT INFORMATION
  Report Type: Spontaneous
  Country: US (occurrence: US)
  Receive Date: 20141205
  Receipt Date: 20141205
  Transmission Date: 20150529
  Serious: No
  Sender: FDA-Public Use
  Company Number: US-BRISTOL-MYERS SQUIBB COMPANY-20200101

PATIENT
  Age: 68 Year
  Sex: Female

DRUGS (9)
  1. SYMLIN [Suspect]
     Active Substance: PRAMLINTIDE ACETATE
     Indication: TYPE 1 DIABETES MELLITUS
     Dates: start: 2013
  2. LIPITOR [Concomitant]
     Active Substance: ATORVASTATIN CALCIUM
  3. CALCIUM [Concomitant]
     Active Substance: CALCIUM
  4. LISINOPRIL. [Concomitant]
     Active Substance: LISINOPRIL
  5. FISH OIL [Concomitant]
     Active Substance: FISH OIL
  6. NIASPAN [Concomitant]
     Active Substance: NIACIN
  7. LEVOTHYROXINE [Concomitant]
     Active Substance: LEVOTHYROXINE
  8. FOLIC ACID. [Concomitant]
     Active Substance: FOLIC ACID
  9. MULTIVITAMIN [Concomitant]
     Active Substance: VITAMINS

REACTIONS (1)
  - Blood glucose decreased [Unknown]
